FAERS Safety Report 9135063 (Version 4)
Quarter: 2013Q2

REPORT INFORMATION
  Report Type: Report from Study
  Country: US (occurrence: US)
  Receive Date: 20130304
  Receipt Date: 20130606
  Transmission Date: 20140414
  Serious: Yes (Other)
  Sender: FDA-Public Use
  Company Number: US-VERTEX PHARMACEUTICALS INC.-2013-002934

PATIENT
  Age: 51 Year
  Sex: Female
  Weight: 106 kg

DRUGS (9)
  1. VX-950 (TELAPREVIR) [Suspect]
     Indication: HEPATITIS C
     Dosage: 750 MG, TID
     Route: 048
     Dates: start: 20130116, end: 20130410
  2. RIBAVIRIN [Suspect]
     Indication: HEPATITIS C
     Dosage: 4 TABS AM, 3 TABS PM
     Route: 048
     Dates: start: 20130116
  3. PEGASYS [Suspect]
     Indication: HEPATITIS C
     Dosage: 180 ?G, QW
     Route: 058
     Dates: start: 20130116
  4. HYDROXYZINE HCL [Concomitant]
     Dosage: 1-2 DF, Q 4-6 HRS
     Route: 048
  5. AMBIEN CR [Concomitant]
     Dosage: 12.5 MG, QD
     Route: 048
  6. IBUPROFEN [Concomitant]
     Dosage: 200 MG, QID
     Route: 048
  7. CELEXA [Concomitant]
     Dosage: 1 DF, QD
     Route: 048
  8. ATIVAN [Concomitant]
     Dosage: 1 DF, QD
     Route: 048
  9. ESTROVEN [Concomitant]
     Dosage: 1 DF, QD
     Route: 048

REACTIONS (8)
  - Platelet count decreased [Not Recovered/Not Resolved]
  - Blood thyroid stimulating hormone abnormal [Not Recovered/Not Resolved]
  - Epistaxis [Not Recovered/Not Resolved]
  - Weight increased [Not Recovered/Not Resolved]
  - Fatigue [Not Recovered/Not Resolved]
  - Rash erythematous [Not Recovered/Not Resolved]
  - Pruritus [Not Recovered/Not Resolved]
  - Dysgeusia [Not Recovered/Not Resolved]
